FAERS Safety Report 21275219 (Version 1)
Quarter: 2022Q3

REPORT INFORMATION
  Report Type: Spontaneous
  Country: US (occurrence: None)
  Receive Date: 20220830
  Receipt Date: 20220830
  Transmission Date: 20221026
  Serious: No
  Sender: FDA-Public Use
  Company Number: None

PATIENT
  Sex: Female

DRUGS (1)
  1. ZEJULA [Suspect]
     Active Substance: NIRAPARIB
     Indication: Fallopian tube cancer
     Dosage: FREQUENCY : DAILY;?
     Route: 048
     Dates: start: 20220111, end: 20220628

REACTIONS (2)
  - Drug ineffective [None]
  - Therapy cessation [None]
